FAERS Safety Report 4311404-X (Version None)
Quarter: 2004Q1

REPORT INFORMATION
  Report Type: 
  Country: None (occurrence: None)
  Receive Date: 20040302
  Receipt Date: 20040220
  Transmission Date: 20041129
  Serious: Yes (Other)
  Sender: FDA-Public Use
  Company Number: US-JNJFOC-20040204910

PATIENT
  Age: 57 Year
  Sex: Female
  Weight: 63.5036 kg

DRUGS (12)
  1. INFLIXIMAB (INFLIXIMAB, RECOMBINANT) LYOPHILIZED POWDER [Suspect]
     Indication: RHEUMATOID ARTHRITIS
     Dosage: INTRAVENOUS
     Route: 042
     Dates: start: 20000607
  2. COLAZOL (BALSALAZIDE SODIUM) [Concomitant]
  3. EVOXAC [Concomitant]
  4. CALCIUM (CALCIUM) [Concomitant]
  5. BEXTRA [Concomitant]
  6. FOLIC ACID [Concomitant]
  7. METHOTREXATE [Concomitant]
  8. SULFASALAZINE (SULFASALAZINE) TABLETS [Concomitant]
  9. CLARINEX [Concomitant]
  10. MULTIVITAMIN (MULTIVITAMINS) [Concomitant]
  11. FLONASE [Concomitant]
  12. VITAMIN E [Concomitant]

REACTIONS (1)
  - BASAL CELL CARCINOMA [None]
